FAERS Safety Report 19923060 (Version 4)
Quarter: 2022Q1

REPORT INFORMATION
  Report Type: Report from Study
  Country: KR (occurrence: None)
  Receive Date: 20211005
  Receipt Date: 20220121
  Transmission Date: 20220423
  Serious: Yes (Hospitalization)
  Sender: FDA-Public Use
  Company Number: KR-ROCHE-2925145

PATIENT
  Age: 74 Year
  Sex: Female
  Weight: 48 kg

DRUGS (23)
  1. ATEZOLIZUMAB [Suspect]
     Active Substance: ATEZOLIZUMAB
     Indication: Bile duct cancer
     Dosage: START DATE OF MOST RECENT DOSE (1200 MG) OF ATEZOLIZUMAB PRIOR TO AE/SAE : 29/SEP/2021
     Route: 041
     Dates: start: 20210707
  2. BEVACIZUMAB [Suspect]
     Active Substance: BEVACIZUMAB
     Indication: Bile duct cancer
     Dosage: START DATE OF MOST RECENT DOSE OF BLINDED BEVACIZUMAB PRIOR TO AE/SAE : 29/SEP/2021
     Route: 042
     Dates: start: 20210707
  3. CISPLATIN [Suspect]
     Active Substance: CISPLATIN
     Indication: Bile duct cancer
     Dosage: START DATE OF MOST RECENT DOSE (35 MG) OF CISPLATIN PRIOR TO AE/SAE : 15/SEP/2021
     Route: 042
     Dates: start: 20210707
  4. GEMCITABINE [Suspect]
     Active Substance: GEMCITABINE
     Indication: Bile duct cancer
     Dosage: START DATE OF MOST RECENT DOSE (1400 MG) OF STUDY DRUG PRIOR TO AE/SAE : 15/SEP/2021
     Route: 042
     Dates: start: 20210707
  5. LIPITOR [Concomitant]
     Active Substance: ATORVASTATIN CALCIUM
     Indication: Hyperlipidaemia
     Dosage: LIPITOR 20MG
     Dates: start: 2016
  6. METOCLOPRAMIDE HYDROCHLORIDE [Concomitant]
     Active Substance: METOCLOPRAMIDE HYDROCHLORIDE
     Indication: Prophylaxis
     Dosage: MACPERAN 5MG
     Dates: start: 20210708
  7. RAMOSETRON HYDROCHLORIDE [Concomitant]
     Active Substance: RAMOSETRON HYDROCHLORIDE
     Indication: Prophylaxis
     Dosage: NASEA OD 0.1MG
     Dates: start: 20210708
  8. OXYCODONE HYDROCHLORIDE [Concomitant]
     Active Substance: OXYCODONE HYDROCHLORIDE
     Indication: Prophylaxis
     Dosage: IRCODON 5MG
     Dates: start: 20210708
  9. MOSAPRIDE CITRATE [Concomitant]
     Active Substance: MOSAPRIDE CITRATE
     Indication: Prophylaxis
     Dosage: GASMOTIN 5MG
     Dates: start: 20210708
  10. MAGMIL S [Concomitant]
     Indication: Prophylaxis
     Dosage: MAGMIL S 250MG
     Dates: start: 20210708
  11. LACTULOSE [Concomitant]
     Active Substance: LACTULOSE
     Indication: Prophylaxis
     Dosage: DUPHALAC-EASY SYR. 15ML
     Dates: start: 20210708
  12. TANTUM [Concomitant]
     Active Substance: BENZYDAMINE HYDROCHLORIDE
     Indication: Prophylaxis
     Dosage: TANTUM 1.5MG/ML 100ML
     Dates: start: 20210708
  13. MEGACE F [Concomitant]
     Indication: Prophylaxis
     Dosage: MEGACE-F 625MG/5ML
     Dates: start: 20210704
  14. DEXAMETHASONE [Concomitant]
     Active Substance: DEXAMETHASONE
     Dosage: DEXAMETHASONE 5MG/1ML
     Route: 042
     Dates: start: 20210707
  15. AKYNZEO [Concomitant]
     Active Substance: NETUPITANT\PALONOSETRON HYDROCHLORIDE
     Dosage: AKYNZEO 300MG+0.56MG
     Dates: start: 20210707
  16. PROAMIN [Concomitant]
     Indication: Prophylaxis
     Dosage: PROAMIN 10% 200ML
     Dates: start: 20210908, end: 20210908
  17. PROAMIN [Concomitant]
     Dosage: PROAMIN 10% 200ML
     Dates: start: 20210915, end: 20210915
  18. PROAMIN [Concomitant]
     Dosage: PROAMIN 10% 200ML
     Dates: start: 20210929, end: 20210929
  19. PROPACETAMOL HYDROCHLORIDE [Concomitant]
     Active Substance: PROPACETAMOL HYDROCHLORIDE
     Indication: Prophylaxis
     Dosage: DENOGAN 1G
     Dates: start: 20210929, end: 20210929
  20. SUPRAX [Concomitant]
     Active Substance: CEFIXIME
     Indication: Prophylaxis
     Dosage: SUPRAX 100MG
     Dates: start: 20210929, end: 20211005
  21. PIPERACILLIN SODIUM\TAZOBACTAM SODIUM [Concomitant]
     Active Substance: PIPERACILLIN SODIUM\TAZOBACTAM SODIUM
     Dosage: 4G+0.5G
     Dates: start: 20210929, end: 20211001
  22. WINUF [Concomitant]
     Dates: start: 20210929, end: 20211001
  23. PREPAIN [Concomitant]
     Dates: start: 20211130

REACTIONS (1)
  - Pyrexia [Recovered/Resolved]

NARRATIVE: CASE EVENT DATE: 20210929
